FAERS Safety Report 6250230-1 (Version None)
Quarter: 2009Q2

REPORT INFORMATION
  Report Type: 
  Country: None (occurrence: None)
  Receive Date: 20090630
  Receipt Date: 20090617
  Transmission Date: 20091009
  Serious: Yes (Other)
  Sender: FDA-Public Use
  Company Number: GB-RANBAXY-2009RR-25087

PATIENT
  Age: 63 Year
  Sex: Female

DRUGS (1)
  1. AMOXICILLIN [Suspect]
     Dosage: UNK
     Route: 048

REACTIONS (3)
  - ANGIOEDEMA [None]
  - HYPERSENSITIVITY [None]
  - URTICARIA [None]
